FAERS Safety Report 5443062-5 (Version None)
Quarter: 2007Q3

REPORT INFORMATION
  Report Type: 
  Country: None (occurrence: None)
  Receive Date: 20070905
  Receipt Date: 20070829
  Transmission Date: 20080115
  Serious: Yes (Other)
  Sender: FDA-Public Use
  Company Number: PHFR2007MT02588

PATIENT
  Age: 31 Year
  Sex: Female

DRUGS (1)
  1. CATAFLAM [Suspect]
     Indication: PULPITIS DENTAL
     Dosage: 50MG ONCE
     Route: 048
     Dates: start: 20070801, end: 20070801

REACTIONS (2)
  - BURN OESOPHAGEAL [None]
  - GASTRIC LAVAGE [None]
